FAERS Safety Report 15973729 (Version 1)
Quarter: 2019Q1

REPORT INFORMATION
  Report Type: Spontaneous
  Country: IL (occurrence: IL)
  Receive Date: 20190217
  Receipt Date: 20190217
  Transmission Date: 20190418
  Serious: Yes (Other)
  Sender: FDA-Public Use
  Company Number: IL-B.I. PHARMACEUTICALS,INC./RIDGEFIELD-2019-BI-006035

PATIENT
  Sex: Male

DRUGS (1)
  1. JARDIANCE DUO [Suspect]
     Active Substance: EMPAGLIFLOZIN\METFORMIN HYDROCHLORIDE
     Indication: DIABETES MELLITUS
     Dosage: STRENGTH AND UNIT DOSE: 5/1000 MILLIGRAM
     Route: 065

REACTIONS (4)
  - Non-Hodgkin^s lymphoma [Not Recovered/Not Resolved]
  - Oedema peripheral [Not Recovered/Not Resolved]
  - Lymphadenopathy [Not Recovered/Not Resolved]
  - Body temperature fluctuation [Not Recovered/Not Resolved]
